FAERS Safety Report 4726819-5 (Version None)
Quarter: 2005Q3

REPORT INFORMATION
  Report Type: 
  Country: None (occurrence: None)
  Receive Date: 20050725
  Receipt Date: 20050428
  Transmission Date: 20060218
  Serious: No
  Sender: FDA-Public Use
  Company Number: USA050496917

PATIENT
  Age: 31 Year
  Sex: Male

DRUGS (3)
  1. STRATTERA [Suspect]
     Indication: ATTENTION DEFICIT/HYPERACTIVITY DISORDER
     Dosage: 25 MG/2 DAY
     Dates: start: 20050422
  2. FLEXERIL [Concomitant]
  3. LORTAB [Concomitant]

REACTIONS (3)
  - HEADACHE [None]
  - NAUSEA [None]
  - SOMNOLENCE [None]
